FAERS Safety Report 4845967-2 (Version None)
Quarter: 2005Q4

REPORT INFORMATION
  Report Type: 
  Country: None (occurrence: None)
  Receive Date: 20051129
  Receipt Date: 19980318
  Transmission Date: 20060501
  Serious: Yes (Other)
  Sender: FDA-Public Use
  Company Number: 500952

PATIENT
  Age: 17 Year
  Sex: Male

DRUGS (9)
  1. GAMMAGARD [Suspect]
     Indication: BONE MARROW TRANSPLANT
     Dosage: 32 GM;IV
     Route: 042
  2. GANCICLOVIR [Concomitant]
  3. FOSCARNET [Concomitant]
  4. CYCLOSPORINE [Concomitant]
  5. NORFLOXACIN [Concomitant]
  6. CLOTRIMAZOLE [Concomitant]
  7. METOCLOPRAMIDE [Concomitant]
  8. ATENOLOL [Concomitant]
  9. LOPERAMIDE [Concomitant]

REACTIONS (5)
  - RETINAL EXUDATES [None]
  - RETINAL HAEMORRHAGE [None]
  - RETINAL VEIN OCCLUSION [None]
  - RETINAL VEIN THROMBOSIS [None]
  - VISION BLURRED [None]
